FAERS Safety Report 4347401-8 (Version None)
Quarter: 2004Q1

REPORT INFORMATION
  Report Type: 
  Country: None (occurrence: None)
  Receive Date: 20040319
  Receipt Date: 20031230
  Transmission Date: 20041129
  Serious: No
  Sender: FDA-Public Use
  Company Number: US-JNJFOC-20030904443

PATIENT
  Age: 20 Year
  Sex: Female
  Weight: 47.6277 kg

DRUGS (1)
  1. ORTHO EVRA [Suspect]
     Indication: CONTRACEPTION
     Dosage: 1 DOSE(S), 3 IN 4 WEEK, TRANSDERMAL
     Route: 062
     Dates: start: 20030101, end: 20030501

REACTIONS (13)
  - ABDOMINAL PAIN [None]
  - ASTHENIA [None]
  - CERVICAL DYSPLASIA [None]
  - DECREASED APPETITE [None]
  - DEHYDRATION [None]
  - DIARRHOEA [None]
  - DRY MOUTH [None]
  - DYSMENORRHOEA [None]
  - FLUSHING [None]
  - HEADACHE [None]
  - HYPERHIDROSIS [None]
  - NAUSEA [None]
  - VOMITING [None]
